FAERS Safety Report 7169654-3 (Version None)
Quarter: 2010Q4

REPORT INFORMATION
  Report Type: 
  Country: None (occurrence: None)
  Receive Date: 20101217
  Receipt Date: 20101207
  Transmission Date: 20110411
  Serious: Yes (Other)
  Sender: FDA-Public Use
  Company Number: US-JNJFOC-20101204056

PATIENT
  Age: 65 Year
  Sex: Male
  Weight: 90.72 kg

DRUGS (11)
  1. IMODIUM MULTI-SYMPTOM RELIEF [Suspect]
     Route: 048
  2. IMODIUM MULTI-SYMPTOM RELIEF [Suspect]
     Indication: DIARRHOEA
     Dosage: 2 CAPLETS AFTER FIRST LOOSE STOOL AND 1 MORE AFTER THE NEXT LOOSE STOOL
     Route: 048
  3. FISH OIL [Concomitant]
     Indication: BLOOD DISORDER
     Dosage: OVER 2 YEARS
  4. FIBRE, DIETARY [Concomitant]
     Indication: MEDICAL DIET
     Dosage: OVER 2 YEARS
  5. MEN MULTIVITAMINS [Concomitant]
     Indication: VITAMIN SUPPLEMENTATION
     Dosage: OVER 2 YEARS
  6. VITAMIN E WITH SELENIUM [Concomitant]
     Indication: BLOOD CHOLESTEROL
     Dosage: OVER 2 YEARS
  7. NO-FLUSH NIACIN [Concomitant]
     Indication: BLOOD CHOLESTEROL
     Dosage: OVER 2 YEARS
  8. GINKGO BILOBA [Concomitant]
     Indication: ARTHROPATHY
     Dosage: OVER 2 YEARS
  9. GINKGO BILOBA [Concomitant]
     Indication: MEMORY IMPAIRMENT
     Dosage: OVER 2 YEARS
  10. VITAMIN D3 [Concomitant]
     Indication: VITAMIN SUPPLEMENTATION
     Dosage: OVER 2 YEARS
  11. CINNAMON [Concomitant]
     Indication: BLOOD DISORDER
     Dosage: OVER 2 YEARS

REACTIONS (2)
  - CONSTIPATION [None]
  - PRESYNCOPE [None]
